FAERS Safety Report 22530116 (Version 2)
Quarter: 2023Q2

REPORT INFORMATION
  Report Type: Spontaneous
  Country: US (occurrence: US)
  Receive Date: 20230607
  Receipt Date: 20230609
  Transmission Date: 20230721
  Serious: No
  Sender: FDA-Public Use
  Company Number: US-BIOGENIDEC-2012BI028281

PATIENT
  Sex: Female

DRUGS (1)
  1. TYSABRI [Suspect]
     Active Substance: NATALIZUMAB
     Indication: Multiple sclerosis
     Route: 050
     Dates: start: 20120730

REACTIONS (19)
  - Product dose omission issue [Unknown]
  - Contusion [Not Recovered/Not Resolved]
  - Dysarthria [Not Recovered/Not Resolved]
  - Poor venous access [Not Recovered/Not Resolved]
  - Catheter site pain [Recovered/Resolved]
  - Hyperhidrosis [Recovered/Resolved]
  - Vein disorder [Recovered/Resolved]
  - Vein rupture [Recovered/Resolved]
  - Aphasia [Unknown]
  - Motor dysfunction [Unknown]
  - Mental impairment [Unknown]
  - Anxiety [Not Recovered/Not Resolved]
  - Memory impairment [Not Recovered/Not Resolved]
  - Asthenia [Not Recovered/Not Resolved]
  - Infusion site swelling [Not Recovered/Not Resolved]
  - Fatigue [Not Recovered/Not Resolved]
  - Blood pressure decreased [Unknown]
  - Chest discomfort [Recovered/Resolved]
  - Dizziness [Recovered/Resolved]

NARRATIVE: CASE EVENT DATE: 20120101
